FAERS Safety Report 16656005 (Version 3)
Quarter: 2020Q1

REPORT INFORMATION
  Report Type: Report from Study
  Country: US (occurrence: US)
  Receive Date: 20190801
  Receipt Date: 20200319
  Transmission Date: 20200409
  Serious: Yes (Hospitalization, Other)
  Sender: FDA-Public Use
  Company Number: US-EMD SERONO-9107218

PATIENT
  Sex: Female

DRUGS (1)
  1. REBIF [Suspect]
     Active Substance: INTERFERON BETA-1A
     Indication: MULTIPLE SCLEROSIS
     Dosage: THREE INJECTIONS IN ONE WEEK AND TWO INJECTIONS THE NEXT WEEK?REBIDOSE
     Route: 058
     Dates: start: 20050127

REACTIONS (6)
  - Multiple sclerosis [Unknown]
  - Personality change [Unknown]
  - Eye disorder [Unknown]
  - Off label use [Unknown]
  - Cellulitis [Recovered/Resolved]
  - Stress [Unknown]

NARRATIVE: CASE EVENT DATE: 2019
